FAERS Safety Report 6955325-2 (Version None)
Quarter: 2010Q3

REPORT INFORMATION
  Report Type: 
  Country: None (occurrence: None)
  Receive Date: 20100830
  Receipt Date: 20100824
  Transmission Date: 20110219
  Serious: Yes (Other)
  Sender: FDA-Public Use
  Company Number: FR-BRISTOL-MYERS SQUIBB COMPANY-14924971

PATIENT
  Age: 32 Year
  Sex: Female

DRUGS (4)
  1. TAXOL [Suspect]
     Indication: BREAST CANCER
     Dosage: 8.5, 9.5 AND 10.5 WEEKS OF AMENORRHEA
     Dates: start: 20091216
  2. AVASTIN [Suspect]
     Dates: start: 20091216
  3. TAMOXIFEN CITRATE [Suspect]
     Dates: start: 20091101
  4. ZOMETA [Suspect]
     Dates: start: 20091216

REACTIONS (2)
  - ABORTION INDUCED [None]
  - PREGNANCY [None]
